FAERS Safety Report 4698153-3 (Version None)
Quarter: 2005Q2

REPORT INFORMATION
  Report Type: 
  Country: None (occurrence: None)
  Receive Date: 20050623
  Receipt Date: 20050617
  Transmission Date: 20051028
  Serious: Yes (Other)
  Sender: FDA-Public Use
  Company Number: CA-GLAXOSMITHKLINE-A0563226A

PATIENT
  Age: 50 Year
  Sex: Female

DRUGS (3)
  1. WELLBUTRIN SR [Suspect]
     Indication: DEPRESSION
     Dosage: 150MG TWICE PER DAY
     Route: 048
     Dates: start: 20030101
  2. TOPAMAX [Concomitant]
     Indication: MIGRAINE
     Dosage: 300MG PER DAY
     Route: 048
     Dates: start: 20050101
  3. CLONAZEPAM [Concomitant]
     Dosage: 10MG AT NIGHT
     Route: 048

REACTIONS (9)
  - CONVULSION [None]
  - DIZZINESS [None]
  - DRUG WITHDRAWAL SYNDROME [None]
  - DYSKINESIA [None]
  - FATIGUE [None]
  - LOSS OF CONTROL OF LEGS [None]
  - MALAISE [None]
  - NAUSEA [None]
  - TREMOR [None]
